FAERS Safety Report 5700015-7 (Version None)
Quarter: 2008Q2

REPORT INFORMATION
  Report Type: 
  Country: None (occurrence: None)
  Receive Date: 20080410
  Receipt Date: 20080404
  Transmission Date: 20081010
  Serious: Yes (Hospitalization)
  Sender: FDA-Public Use
  Company Number: US-ASTRAZENECA-2008UW06868

PATIENT
  Age: 30 Year
  Sex: Female

DRUGS (6)
  1. PRILOSEC [Suspect]
     Route: 048
  2. MYLANTA [Suspect]
     Dosage: 1 TEASPOON MORNING AND AFTERNOON
  3. PEPCID [Suspect]
     Dosage: 1 MORNING, 1 AFTERNOON
  4. MAALOX [Suspect]
     Dosage: 1 MORNING AND AFTERNOON
  5. TUMS [Suspect]
     Dosage: 5 TABLETS DAILY
  6. PREVACID [Suspect]
     Dosage: 1 MORNING, 1 AFTERNOON

REACTIONS (7)
  - DIARRHOEA [None]
  - DIZZINESS [None]
  - DYSPNOEA [None]
  - FATIGUE [None]
  - HEADACHE [None]
  - HYPERHIDROSIS [None]
  - NAUSEA [None]
